FAERS Safety Report 5132149-2 (Version None)
Quarter: 2006Q4

REPORT INFORMATION
  Report Type: 
  Country: None (occurrence: None)
  Receive Date: 20061017
  Receipt Date: 20061011
  Transmission Date: 20070319
  Serious: Yes (Life-Threatening, Hospitalization)
  Sender: FDA-Public Use
  Company Number: CLOF-10326

PATIENT
  Age: 37 Year
  Sex: Female

DRUGS (15)
  1. CLOLAR [Suspect]
     Indication: MYELOID LEUKAEMIA
     Dosage: 82.8 MG U/WK; IV
     Route: 042
     Dates: start: 20060830, end: 20060903
  2. CLOLAR [Suspect]
     Indication: MYELOID LEUKAEMIA
     Dosage: 82.8 MG U/WK; IV
     Route: 042
     Dates: start: 20060830, end: 20060903
  3. CYTARABINE [Suspect]
     Indication: MYELOID LEUKAEMIA
     Dosage: 1790 MG QD X 5; IV
     Route: 042
     Dates: start: 20060830, end: 20060930
  4. ACYCLOVIR [Concomitant]
  5. ALPRAZOLAM [Concomitant]
  6. CASPOFUNGIN [Concomitant]
  7. NOVOLIN [Concomitant]
  8. LEVAQUIN [Concomitant]
  9. MEROPENEM [Concomitant]
  10. NEOSPORIN [Concomitant]
  11. NEUPOGEN [Concomitant]
  12. PROTONIX [Concomitant]
  13. VANCOMYCIN [Concomitant]
  14. VORICONAZOLE [Concomitant]
  15. XYLOCAINE [Concomitant]

REACTIONS (14)
  - ABDOMINAL PAIN [None]
  - AGITATION [None]
  - ANAL FISTULA [None]
  - BLOOD CULTURE POSITIVE [None]
  - ESCHERICHIA INFECTION [None]
  - GENERALISED OEDEMA [None]
  - HAEMODIALYSIS [None]
  - HYPOTENSION [None]
  - LUNG INFILTRATION [None]
  - MULTI-ORGAN FAILURE [None]
  - PYREXIA [None]
  - RENAL FAILURE ACUTE [None]
  - SLEEP DISORDER [None]
  - TUMOUR LYSIS SYNDROME [None]
